FAERS Safety Report 25908498 (Version 1)
Quarter: 2025Q4

REPORT INFORMATION
  Report Type: Report from Study
  Country: US (occurrence: US)
  Receive Date: 20251010
  Receipt Date: 20251010
  Transmission Date: 20260118
  Serious: Yes (Hospitalization)
  Sender: JAZZ
  Company Number: US-JAZZ PHARMACEUTICALS-2025-US-022379

PATIENT
  Sex: Female

DRUGS (4)
  1. EPIDIOLEX [Suspect]
     Active Substance: CANNABIDIOL
     Indication: Epilepsy
     Dosage: 0.5 MILLILITER, BID
     Dates: start: 20250910
  2. EPIDIOLEX [Suspect]
     Active Substance: CANNABIDIOL
     Dosage: 8.16 MILLIGRAM/KILOGRAM/DAY BID
  3. EPIDIOLEX [Suspect]
     Active Substance: CANNABIDIOL
     Dosage: 0.3 MILLILITER, BID, DAILY
     Dates: start: 202509
  4. EPIDIOLEX [Suspect]
     Active Substance: CANNABIDIOL
     Dosage: 0.75 MILLILITER, BID, DAILY

REACTIONS (9)
  - Hospitalisation [Unknown]
  - Seizure [Recovering/Resolving]
  - Irritability [Unknown]
  - Somnolence [Unknown]
  - Hypotonia [Unknown]
  - Nasopharyngitis [Unknown]
  - Erythema [Unknown]
  - Fatigue [Unknown]
  - Viral infection [Unknown]
